FAERS Safety Report 6840397-6 (Version None)
Quarter: 2010Q3

REPORT INFORMATION
  Report Type: 
  Country: None (occurrence: None)
  Receive Date: 20100714
  Receipt Date: 20100708
  Transmission Date: 20110219
  Serious: Yes (Hospitalization)
  Sender: FDA-Public Use
  Company Number: JP-PFIZER INC-2010076000

PATIENT
  Age: 72 Year
  Sex: Female
  Weight: 152 kg

DRUGS (5)
  1. SUNITINIB MALATE [Suspect]
     Indication: GASTROINTESTINAL STROMAL TUMOUR
     Dosage: 50 MG, 1X/DAY
     Route: 048
     Dates: start: 20090623, end: 20090710
  2. AMLODIPINE [Concomitant]
     Dosage: 5 MG, 1X/DAY
     Route: 048
     Dates: start: 20090627, end: 20090703
  3. AMLODIPINE [Concomitant]
     Dosage: 5 MG, 2X/DAY
     Dates: start: 20090704
  4. PROMAC /JPN/ [Concomitant]
     Dosage: 0.5 G, 3X/DAY
     Route: 048
     Dates: start: 20090629
  5. DAIPHEN [Concomitant]
     Dosage: 2 DF, 2X/DAY
     Route: 048
     Dates: start: 20090706, end: 20090710

REACTIONS (4)
  - ASCITES [None]
  - HYPONATRAEMIA [None]
  - HYPOTHYROIDISM [None]
  - PLATELET COUNT DECREASED [None]
